FAERS Safety Report 11691203 (Version 1)
Quarter: 2015Q4

REPORT INFORMATION
  Report Type: Spontaneous
  Country: US (occurrence: US)
  Receive Date: 20151102
  Receipt Date: 20151102
  Transmission Date: 20160304
  Serious: No
  Sender: FDA-Public Use
  Company Number: US-PERRIGO-15US009203

PATIENT
  Age: 56 Year
  Sex: Female
  Weight: 53.61 kg

DRUGS (2)
  1. NICOTINE MINI MINT 4 MG 957 [Suspect]
     Active Substance: NICOTINE
     Indication: SMOKING CESSATION THERAPY
     Dosage: 4 MG, TWICE WITHIN 1 HOUR
     Route: 002
     Dates: start: 20150828, end: 20150828
  2. NICOTINE MINI MINT 4 MG 957 [Suspect]
     Active Substance: NICOTINE
     Dosage: 4 MG, SINGLE
     Route: 002
     Dates: start: 201508, end: 201508

REACTIONS (3)
  - Vomiting [Recovered/Resolved]
  - Throat irritation [Recovered/Resolved]
  - Nausea [Recovered/Resolved]

NARRATIVE: CASE EVENT DATE: 20150828
